FAERS Safety Report 16068084 (Version 3)
Quarter: 2020Q2

REPORT INFORMATION
  Report Type: Report from Study
  Country: US (occurrence: US)
  Receive Date: 20190313
  Receipt Date: 20200507
  Transmission Date: 20200713
  Serious: No
  Sender: FDA-Public Use
  Company Number: PHEH2019US010596

PATIENT
  Sex: Female

DRUGS (2)
  1. GILENYA [Suspect]
     Active Substance: FINGOLIMOD HYDROCHLORIDE
     Route: 048
  2. GILENYA [Suspect]
     Active Substance: FINGOLIMOD HYDROCHLORIDE
     Indication: MULTIPLE SCLEROSIS
     Dosage: 0.5 MG, QD
     Route: 048
     Dates: start: 20190227

REACTIONS (3)
  - Influenza [Unknown]
  - Fatigue [Recovering/Resolving]
  - Malaise [Unknown]
